FAERS Safety Report 7949832-3 (Version None)
Quarter: 2011Q4

REPORT INFORMATION
  Report Type: 
  Country: None (occurrence: None)
  Receive Date: 20111130
  Receipt Date: 20111123
  Transmission Date: 20120403
  Serious: Yes (Disabling)
  Sender: FDA-Public Use
  Company Number: FI-ABBOTT-11P-055-0877167-00

PATIENT
  Sex: Male

DRUGS (12)
  1. PREDISOLONE (PREDNISOLON) [Concomitant]
     Indication: RHEUMATOID ARTHRITIS
     Route: 048
     Dates: start: 19960101
  2. PREDISOLONE (PREDNISOLON) [Concomitant]
     Dates: start: 20110101
  3. CALCIUM CARBONATE; CHOLECALCIFEROL (POWDER) (KALCIPOS-D 500 MG/400 IU) [Concomitant]
     Indication: BONE DISORDER
  4. HUMIRA [Suspect]
     Indication: RHEUMATOID ARTHRITIS
     Route: 058
     Dates: start: 20041001, end: 20110630
  5. PREDISOLONE (PREDNISOLON) [Concomitant]
     Dates: start: 20110101, end: 20110101
  6. AZATHIOPRINE [Concomitant]
     Dates: start: 20110101
  7. CALCIUM CARBONATE; CHOLECALCIFEROL (POWDER) (KALCIPOS-D 500 MG/400 IU) [Concomitant]
     Indication: PROPHYLAXIS
     Route: 048
     Dates: start: 20000101
  8. AZATHIOPRINE [Concomitant]
     Indication: RHEUMATOID ARTHRITIS
     Route: 048
     Dates: start: 20030101
  9. LEVOTHYROXINE SODIUM (THYROXIN) [Concomitant]
     Indication: HYPOTHYROIDISM
     Route: 048
  10. OMEPRAZOLE (OMEPRAZOL RATIOPHARM) [Concomitant]
     Indication: PROPHYLAXIS
     Route: 048
     Dates: start: 20000101
  11. AZATHIOPRINE [Concomitant]
     Dates: start: 20110101, end: 20110101
  12. OMEPRAZOLE (OMEPRAZOL RATIOPHARM) [Concomitant]
     Indication: GASTRIC DISORDER

REACTIONS (5)
  - PULMONARY FUNCTION TEST DECREASED [None]
  - COUGH [None]
  - PULMONARY FIBROSIS [None]
  - DYSPNOEA [None]
  - PLEURAL FIBROSIS [None]
